FAERS Safety Report 14106601 (Version 1)
Quarter: 2017Q4

REPORT INFORMATION
  Report Type: Spontaneous
  Country: US (occurrence: US)
  Receive Date: 20171018
  Receipt Date: 20171018
  Transmission Date: 20180321
  Serious: No
  Sender: FDA-Public Use
  Company Number: US-BAUSCH-BL-2016-023242

PATIENT
  Age: 57 Year
  Sex: Male
  Weight: 99.88 kg

DRUGS (5)
  1. VIAGRA [Concomitant]
     Active Substance: SILDENAFIL CITRATE
     Indication: ERECTILE DYSFUNCTION
     Route: 048
     Dates: start: 2013
  2. BUPROPION. [Suspect]
     Active Substance: BUPROPION
     Indication: MAJOR DEPRESSION
     Route: 048
     Dates: start: 200804
  3. ZOLOFT [Concomitant]
     Active Substance: SERTRALINE HYDROCHLORIDE
     Indication: MAJOR DEPRESSION
     Route: 048
     Dates: start: 201102
  4. BUPROPION. [Suspect]
     Active Substance: BUPROPION
     Route: 048
     Dates: start: 201506
  5. BUPROPION. [Suspect]
     Active Substance: BUPROPION
     Dosage: EVENTUALLY TITRATED UP TO 450 MG DAILY
     Route: 048

REACTIONS (2)
  - Drug effect decreased [Unknown]
  - Drug level increased [Not Recovered/Not Resolved]

NARRATIVE: CASE EVENT DATE: 20160608
